FAERS Safety Report 7623584-9 (Version None)
Quarter: 2011Q3

REPORT INFORMATION
  Report Type: 
  Country: None (occurrence: None)
  Receive Date: 20110720
  Receipt Date: 20110706
  Transmission Date: 20111222
  Serious: No
  Sender: FDA-Public Use
  Company Number: JP-ELI_LILLY_AND_COMPANY-JP201012002109

PATIENT
  Sex: Male

DRUGS (3)
  1. CELECOXIB [Concomitant]
     Dosage: UNK
  2. URSO 250 [Concomitant]
     Dosage: UNK
  3. FORTEO [Suspect]
     Indication: OSTEOPOROSIS
     Dosage: 20 UG, DAILY (1/D)
     Route: 058
     Dates: start: 20101201, end: 20101204

REACTIONS (1)
  - DISCOMFORT [None]
